FAERS Safety Report 9148730 (Version 1)
Quarter: 2013Q1

REPORT INFORMATION
  Report Type: Spontaneous
  Country: AU (occurrence: AU)
  Receive Date: 20130308
  Receipt Date: 20130308
  Transmission Date: 20140127
  Serious: Yes (Hospitalization)
  Sender: FDA-Public Use
  Company Number: AU-B.I. PHARMACEUTICALS,INC./RIDGEFIELD-2013-AU-00152AU

PATIENT
  Age: 71 Year
  Sex: Male

DRUGS (14)
  1. PRADAXA [Suspect]
     Indication: ATRIAL FIBRILLATION
     Dosage: 300 MG
     Route: 048
     Dates: start: 2012, end: 20120922
  2. IBUPROFEN [Suspect]
     Dosage: 1200 MG
  3. SILDENAFIL [Concomitant]
     Dosage: 75 MG
  4. BOSENTAN [Concomitant]
     Dosage: 250 MG
  5. POTASSIUM [Concomitant]
     Dosage: 1200 MG
  6. PANTOPRAZOLE [Concomitant]
     Dosage: 40 MG
  7. ALLOPURINOL [Concomitant]
     Dosage: 200 MG
  8. FUROSEMIDE [Concomitant]
     Dosage: 40 MG
  9. THIAMINE [Concomitant]
     Dosage: 300 MG
  10. CHOLECALCIFEROL [Concomitant]
     Dosage: 25 MCG
  11. DIGOXIN [Concomitant]
     Dosage: 62.5 MCG
  12. PANADEINE FORTE [Concomitant]
  13. ALPHAGAN [Concomitant]
  14. AZOPT [Concomitant]

REACTIONS (3)
  - Dyspnoea [Unknown]
  - Haematemesis [Recovered/Resolved]
  - Melaena [Recovered/Resolved]
